FAERS Safety Report 6345184-3 (Version None)
Quarter: 2009Q3

REPORT INFORMATION
  Report Type: 
  Country: None (occurrence: None)
  Receive Date: 20090909
  Receipt Date: 20090826
  Transmission Date: 20100115
  Serious: Yes (Hospitalization)
  Sender: FDA-Public Use
  Company Number: FR-PURDUE-USA-2009-0039956

PATIENT
  Sex: Female

DRUGS (8)
  1. TRAMADOL HCL [Suspect]
     Indication: ESCHAR
     Dosage: UNK
     Route: 048
     Dates: start: 20081114, end: 20081117
  2. PYOSTACINE [Suspect]
     Indication: ESCHAR
     Dosage: 1500 MG, UNK
     Route: 048
     Dates: start: 20081114, end: 20081117
  3. ALDACTONE [Concomitant]
     Indication: HYPERTENSION
     Dosage: 25 MG, UNK
     Route: 048
     Dates: end: 20081117
  4. WARFARIN SODIUM [Concomitant]
     Indication: DRUG USE FOR UNKNOWN INDICATION
     Dosage: 1 MG, UNK
     Route: 048
     Dates: end: 20081117
  5. BUMEX [Concomitant]
     Indication: HYPERTENSION
     Dosage: UNK
     Dates: end: 20081117
  6. MODUCREN [Concomitant]
     Indication: HYPERTENSION
     Dosage: UNK
     Route: 048
     Dates: end: 20081117
  7. IKOREL [Concomitant]
     Indication: DRUG USE FOR UNKNOWN INDICATION
     Route: 048
  8. NITROGLYCERIN [Concomitant]
     Indication: DRUG USE FOR UNKNOWN INDICATION

REACTIONS (3)
  - DIARRHOEA [None]
  - INTERNATIONAL NORMALISED RATIO INCREASED [None]
  - RENAL FAILURE ACUTE [None]
